FAERS Safety Report 7495780-5 (Version None)
Quarter: 2011Q2

REPORT INFORMATION
  Report Type: 
  Country: None (occurrence: None)
  Receive Date: 20110523
  Receipt Date: 20110511
  Transmission Date: 20111010
  Serious: Yes (Hospitalization, Other)
  Sender: FDA-Public Use
  Company Number: JP-ELI_LILLY_AND_COMPANY-JP201104004371

PATIENT
  Sex: Female
  Weight: 40 kg

DRUGS (13)
  1. MENEST [Concomitant]
     Indication: PARKINSON'S DISEASE
     Dosage: 300 MG, UNK
     Route: 048
     Dates: end: 20101201
  2. MENEST [Concomitant]
     Dosage: 400 MG, UNK
     Route: 048
     Dates: start: 20101202, end: 20110201
  3. ABILIT [Concomitant]
     Dosage: 50 MG, QD
     Route: 048
     Dates: start: 20100907, end: 20110119
  4. MENEST [Concomitant]
     Dosage: 250 MG, TID
     Dates: start: 20110201
  5. MYONAL [Concomitant]
     Dosage: 50 MG, TID
     Route: 048
     Dates: end: 20110304
  6. GASMOTIN [Concomitant]
     Dosage: 5 MG, TID
     Route: 048
     Dates: end: 20110304
  7. ALPRAZOLAM [Concomitant]
     Dosage: 0.4 MG, QD
     Route: 048
  8. ABILIT [Concomitant]
     Indication: DECREASED APPETITE
     Dosage: 100 MG, QD
     Route: 048
     Dates: start: 20100824, end: 20100906
  9. CYMBALTA [Suspect]
     Indication: DEPRESSION
     Dosage: 20 MG, QD
     Route: 048
     Dates: start: 20110203, end: 20110228
  10. ABILIT [Concomitant]
     Dosage: 50 MG, QD
     Route: 048
     Dates: start: 20110223
  11. SYMMETREL [Concomitant]
     Indication: PARKINSON'S DISEASE
     Dosage: 50 MG, BID
     Route: 048
     Dates: start: 20110201, end: 20110303
  12. VESICARE [Concomitant]
     Dosage: 5 MG, QD
     Route: 048
     Dates: end: 20110304
  13. LENDORMIN [Concomitant]
     Dosage: 0.25 MG, QD
     Route: 048

REACTIONS (3)
  - DELIRIUM [None]
  - CONVULSION [None]
  - WITHDRAWAL SYNDROME [None]
